FAERS Safety Report 7900484-8 (Version None)
Quarter: 2011Q4

REPORT INFORMATION
  Report Type: 
  Country: None (occurrence: None)
  Receive Date: 20111108
  Receipt Date: 20111031
  Transmission Date: 20120403
  Serious: No
  Sender: FDA-Public Use
  Company Number: US-PFIZER INC-2011266493

PATIENT
  Sex: Female
  Weight: 93.4 kg

DRUGS (10)
  1. MICARDIS [Concomitant]
     Indication: HYPERTENSION
     Dosage: 40 MG, UNK
  2. FLECTOR [Suspect]
     Indication: ARTHROPATHY
  3. SYNTHROID [Concomitant]
     Indication: AUTOIMMUNE THYROIDITIS
     Dosage: 150 UG, UNK
  4. TORSEMIDE [Concomitant]
     Indication: LYMPHADENOPATHY
     Dosage: UNK
  5. SYMBICORT [Concomitant]
     Indication: ASTHMA
     Dosage: 160 UG, UNK
  6. POTASSIUM [Concomitant]
     Dosage: UNK
  7. MUCINEX [Concomitant]
     Indication: HYPERSENSITIVITY
     Dosage: 600 MG, UNK
  8. FLECTOR [Suspect]
     Indication: JOINT SWELLING
     Dosage: UNK
     Dates: start: 20111030, end: 20111030
  9. CLARINEX [Concomitant]
     Indication: HYPERSENSITIVITY
     Dosage: 5 MG, UNK
  10. AZELASTINE [Concomitant]
     Indication: HYPERSENSITIVITY
     Dosage: 0.15 %, UNK

REACTIONS (2)
  - PAIN [None]
  - DRUG INEFFECTIVE [None]
